APPROVED DRUG PRODUCT: REMERON
Active Ingredient: MIRTAZAPINE
Strength: 45MG **Federal Register determination that product was not discontinued or withdrawn for safety or effectiveness reasons**
Dosage Form/Route: TABLET;ORAL
Application: N020415 | Product #003
Applicant: ORGANON USA LLC
Approved: Mar 17, 1997 | RLD: Yes | RS: No | Type: DISCN